FAERS Safety Report 5900958-5 (Version None)
Quarter: 2008Q3

REPORT INFORMATION
  Report Type: 
  Country: None (occurrence: None)
  Receive Date: 20080929
  Receipt Date: 20080909
  Transmission Date: 20090109
  Serious: No
  Sender: FDA-Public Use
  Company Number: US-BAYER-200832706NA

PATIENT
  Age: 77 Year

DRUGS (3)
  1. CIPRO [Suspect]
     Indication: WOUND INFECTION STAPHYLOCOCCAL
     Dosage: TOTAL DAILY DOSE: 1000 MG  UNIT DOSE: 500 MG
     Route: 048
     Dates: start: 20080801, end: 20080801
  2. NORVASC [Concomitant]
  3. VIADUR [Concomitant]
     Dates: start: 20080710

REACTIONS (1)
  - WOUND INFECTION [None]
